FAERS Safety Report 5253965-2 (Version None)
Quarter: 2007Q1

REPORT INFORMATION
  Report Type: 
  Country: None (occurrence: None)
  Receive Date: 20070228
  Receipt Date: 20070228
  Transmission Date: 20070707
  Serious: Yes (Life-Threatening, Hospitalization, Other)
  Sender: FDA-Public Use
  Company Number: None

PATIENT
  Age: 53 Year
  Sex: Female
  Weight: 49 kg

DRUGS (1)
  1. NULYTELY [Suspect]
     Indication: COLONOSCOPY
     Dosage: 8 OZ 10 MINUTES ORAL
     Route: 048
     Dates: start: 20060803, end: 20060804

REACTIONS (2)
  - BLOOD SODIUM DECREASED [None]
  - GRAND MAL CONVULSION [None]
